FAERS Safety Report 6753286-2 (Version None)
Quarter: 2010Q2

REPORT INFORMATION
  Report Type: 
  Country: None (occurrence: None)
  Receive Date: 20100603
  Receipt Date: 20100520
  Transmission Date: 20101027
  Serious: Yes (Hospitalization, Other)
  Sender: FDA-Public Use
  Company Number: US-ELI_LILLY_AND_COMPANY-US201005005875

PATIENT
  Sex: Female
  Weight: 52.154 kg

DRUGS (3)
  1. FORTEO [Suspect]
     Indication: OSTEOPOROSIS
     Dosage: 20 UG, DAILY (1/D)
     Dates: start: 20081201, end: 20100520
  2. LEXAPRO [Concomitant]
  3. NEXIUM [Concomitant]

REACTIONS (20)
  - ANAEMIA [None]
  - ASTHENIA [None]
  - BALANCE DISORDER [None]
  - CONCUSSION [None]
  - CONFUSIONAL STATE [None]
  - CONSTIPATION [None]
  - DIZZINESS [None]
  - DYSPNOEA [None]
  - EMOTIONAL DISORDER [None]
  - FALL [None]
  - FATIGUE [None]
  - HAEMORRHAGE INTRACRANIAL [None]
  - INVESTIGATION [None]
  - MEMORY IMPAIRMENT [None]
  - MUSCLE SPASMS [None]
  - MUSCULAR WEAKNESS [None]
  - PNEUMONIA [None]
  - SPEECH DISORDER [None]
  - SYNCOPE [None]
  - VISUAL IMPAIRMENT [None]
